FAERS Safety Report 4842200-2 (Version None)
Quarter: 2005Q4

REPORT INFORMATION
  Report Type: 
  Country: None (occurrence: None)
  Receive Date: 20051129
  Receipt Date: 20051114
  Transmission Date: 20060501
  Serious: Yes (Hospitalization, Other)
  Sender: FDA-Public Use
  Company Number: DEU-2005-0001555

PATIENT
  Age: 53 Year
  Sex: Female
  Weight: 83 kg

DRUGS (9)
  1. PALLADONE [Suspect]
     Indication: PAIN
     Dosage: SEE IMAGE
     Route: 048
     Dates: start: 20030101
  2. PALLADONE [Suspect]
     Indication: PAIN
     Dosage: SEE IMAGE
     Route: 048
     Dates: start: 20031101
  3. PIROXICAM [Concomitant]
  4. SALOFALK ^FALK^ (MESALAZINE) [Concomitant]
  5. NEXIUM [Concomitant]
  6. MINOCYCLINE HCL [Concomitant]
  7. ESTRADIOL [Concomitant]
  8. DROSPIRENONE (DROSPIRENONE) [Concomitant]
  9. REMIFEMIN (CIMICIFUGA /RACEMOSA ROOT) [Concomitant]

REACTIONS (6)
  - DRUG INEFFECTIVE [None]
  - FATIGUE [None]
  - IMPAIRED WORK ABILITY [None]
  - INSOMNIA [None]
  - PRURITUS GENERALISED [None]
  - WEIGHT INCREASED [None]
